FAERS Safety Report 5758963-8 (Version None)
Quarter: 2008Q2

REPORT INFORMATION
  Report Type: 
  Country: None (occurrence: None)
  Receive Date: 20080602
  Receipt Date: 20080513
  Transmission Date: 20081010
  Serious: Yes (Hospitalization)
  Sender: FDA-Public Use
  Company Number: L08-FRA-01912-01

PATIENT
  Age: 26 Year
  Sex: Male

DRUGS (2)
  1. CITALOPRAM HYDROBROMIDE [Suspect]
     Indication: DEPRESSION
  2. MILNACIPRAN [Suspect]
     Indication: DEPRESSION

REACTIONS (9)
  - DYSKINESIA [None]
  - EXTRAPYRAMIDAL DISORDER [None]
  - INTENTIONAL OVERDOSE [None]
  - LARYNGOSPASM [None]
  - LOSS OF CONSCIOUSNESS [None]
  - MYDRIASIS [None]
  - PSYCHOMOTOR HYPERACTIVITY [None]
  - PYREXIA [None]
  - SEROTONIN SYNDROME [None]
